FAERS Safety Report 13512986 (Version 1)
Quarter: 2017Q2

REPORT INFORMATION
  Report Type: Spontaneous
  Country: NL (occurrence: NL)
  Receive Date: 20170504
  Receipt Date: 20170504
  Transmission Date: 20170830
  Serious: Yes (Other)
  Sender: FDA-Public Use
  Company Number: NL-ABBVIE-17K-114-1961861-00

PATIENT
  Sex: Male

DRUGS (1)
  1. HUMIRA [Suspect]
     Active Substance: ADALIMUMAB
     Indication: PRODUCT USED FOR UNKNOWN INDICATION
     Route: 058
     Dates: start: 20170328, end: 2017

REACTIONS (6)
  - Tinnitus [Unknown]
  - Paraesthesia [Unknown]
  - Muscle spasms [Unknown]
  - Dizziness [Unknown]
  - Burning sensation [Unknown]
  - Deafness [Unknown]

NARRATIVE: CASE EVENT DATE: 2017
